FAERS Safety Report 7288516-4 (Version None)
Quarter: 2011Q1

REPORT INFORMATION
  Report Type: 
  Country: None (occurrence: None)
  Receive Date: 20110201
  Receipt Date: 20110120
  Transmission Date: 20110831
  Serious: Yes (Hospitalization)
  Sender: FDA-Public Use
  Company Number: 2011MA000521

PATIENT
  Age: 20 Year
  Sex: Female

DRUGS (5)
  1. CLONAZEPAM [Suspect]
     Indication: ANXIETY
     Dosage: PO
     Route: 048
  2. RISOLID (CHLORDIAZEPOXIDE) [Suspect]
     Indication: ANXIETY
     Dosage: PO
     Route: 048
  3. DIAZEPAM [Suspect]
     Indication: ANXIETY
     Dosage: PO
     Route: 048
  4. BROMAM (BROMAZEPAM) [Suspect]
     Indication: ANXIETY
     Dosage: PO
     Route: 048
  5. OXAZEPAM [Suspect]
     Indication: ANXIETY
     Dosage: PO
     Route: 048

REACTIONS (8)
  - ANXIETY [None]
  - INSOMNIA [None]
  - SKIN DISORDER [None]
  - LETHARGY [None]
  - MEMORY IMPAIRMENT [None]
  - DISTURBANCE IN ATTENTION [None]
  - DRUG WITHDRAWAL SYNDROME [None]
  - ALOPECIA [None]
